FAERS Safety Report 6062498-5 (Version None)
Quarter: 2009Q1

REPORT INFORMATION
  Report Type: 
  Country: None (occurrence: None)
  Receive Date: 20090202
  Receipt Date: 20090202
  Transmission Date: 20090719
  Serious: No
  Sender: FDA-Public Use
  Company Number: None

PATIENT
  Age: 71 Year
  Sex: Male
  Weight: 71.6683 kg

DRUGS (2)
  1. LIPITOR [Suspect]
     Indication: BLOOD CHOLESTEROL ABNORMAL
     Dosage: ONE TABLET EVENING MEAL, ONLY ONCE
     Dates: start: 20090131, end: 20090131
  2. LIPITOR [Suspect]
     Indication: BLOOD TRIGLYCERIDES ABNORMAL
     Dosage: ONE TABLET EVENING MEAL, ONLY ONCE
     Dates: start: 20090131, end: 20090131

REACTIONS (2)
  - DRUG HYPERSENSITIVITY [None]
  - PROSTATOMEGALY [None]
